FAERS Safety Report 15245387 (Version 1)
Quarter: 2018Q3

REPORT INFORMATION
  Report Type: Spontaneous
  Country: IT (occurrence: IT)
  Receive Date: 20180806
  Receipt Date: 20180806
  Transmission Date: 20181010
  Serious: Yes (Other)
  Sender: FDA-Public Use
  Company Number: IT-ASTRAZENECA-2018SE96690

PATIENT
  Sex: Female

DRUGS (2)
  1. FASLODEX [Suspect]
     Active Substance: FULVESTRANT
     Dosage: ONCE/SINGLE ADMINISTRATION
     Route: 030
  2. FASLODEX [Suspect]
     Active Substance: FULVESTRANT
     Dosage: 2.0DF ONCE/SINGLE ADMINISTRATION
     Route: 030

REACTIONS (3)
  - Hypersensitivity [Unknown]
  - Hypotension [Recovered/Resolved]
  - Respiratory disorder [Recovered/Resolved]
